FAERS Safety Report 4376921-5 (Version None)
Quarter: 2004Q2

REPORT INFORMATION
  Report Type: 
  Country: None (occurrence: None)
  Receive Date: 20040608
  Receipt Date: 20040604
  Transmission Date: 20050107
  Serious: Yes (Other)
  Sender: FDA-Public Use
  Company Number: JP-JNJFOC-20040505939

PATIENT
  Age: 42 Year
  Sex: Male

DRUGS (4)
  1. HALDOL [Suspect]
     Indication: SCHIZOPHRENIA
  2. IMPROMEN (BROMPERIDOL) [Suspect]
     Indication: SCHIZOPHRENIA
  3. SULTOPRIDE (SULTOPRIDE) [Suspect]
  4. BIPERIDEN (BIPERIDEN) [Suspect]
     Indication: ADVERSE EVENT

REACTIONS (5)
  - DIABETES MELLITUS [None]
  - RASH GENERALISED [None]
  - RASH PAPULAR [None]
  - TYPE V HYPERLIPIDAEMIA [None]
  - XANTHOMA [None]
